FAERS Safety Report 10880115 (Version 7)
Quarter: 2018Q1

REPORT INFORMATION
  Report Type: Spontaneous
  Country: US (occurrence: US)
  Receive Date: 20150302
  Receipt Date: 20180103
  Transmission Date: 20180508
  Serious: Yes (Other)
  Sender: FDA-Public Use
  Company Number: US-PFIZER INC-2015070435

PATIENT
  Age: 76 Year
  Sex: Female

DRUGS (7)
  1. SUTENT [Suspect]
     Active Substance: SUNITINIB MALATE
     Indication: RENAL CANCER
     Dosage: 50 MG, DAILY (FOR 21 DAYS PER MONTH)
     Route: 048
  2. SUTENT [Suspect]
     Active Substance: SUNITINIB MALATE
     Dosage: 37.5 MG, CYCLIC (1 CAPSULE, ONCE A DAY X4 WEEKS THEN 2 WEEKS OFF
     Route: 048
  3. NEXIUM [Concomitant]
     Active Substance: ESOMEPRAZOLE MAGNESIUM
     Indication: GASTROOESOPHAGEAL REFLUX DISEASE
     Dosage: 40 MG, UNK
  4. SUTENT [Suspect]
     Active Substance: SUNITINIB MALATE
     Dosage: 37.5 MG, CYCLIC (TAKE ONE CAPSULE FOR 7 DAYS AND THEN OFF FOR 7 DAYS)
     Route: 048
     Dates: end: 201712
  5. SUTENT [Suspect]
     Active Substance: SUNITINIB MALATE
     Dosage: 50 MG, CYCLIC, (DAILY X 4 WEEKS + THEN 2 WEEKS OFF)
     Route: 048
     Dates: start: 20170109, end: 20170130
  6. SUTENT [Suspect]
     Active Substance: SUNITINIB MALATE
     Dosage: 37.5 MG, CYCLIC (37.5 MG/DAY, 1 WEEK ON AND 1 WEEK OFF )/()
  7. SYNTHROID [Concomitant]
     Active Substance: LEVOTHYROXINE SODIUM
     Indication: HYPOTHYROIDISM
     Dosage: 25 UG, UNK

REACTIONS (7)
  - Gastroenteritis [Unknown]
  - Fatigue [Recovered/Resolved]
  - Weight decreased [Unknown]
  - Hypertension [Unknown]
  - Thrombocytopenia [Recovered/Resolved]
  - Diarrhoea [Unknown]
  - Neoplasm progression [Unknown]
